FAERS Safety Report 7259385-3 (Version None)
Quarter: 2011Q1

REPORT INFORMATION
  Report Type: 
  Country: None (occurrence: None)
  Receive Date: 20110129
  Receipt Date: 20100825
  Transmission Date: 20110831
  Serious: No
  Sender: FDA-Public Use
  Company Number: US-ABBOTT-10P-163-0666190-00

PATIENT
  Age: 68 Year
  Sex: Female

DRUGS (9)
  1. LEVOTHYROXINE SODIUM [Concomitant]
     Indication: THYROID DISORDER
  2. FOLIC ACID [Concomitant]
     Indication: PRODUCT USED FOR UNKNOWN INDICATION
  3. LUNESTA [Concomitant]
     Indication: INSOMNIA
     Dosage: AT BEDTIME
  4. RECLAST [Concomitant]
     Indication: OSTEOPOROSIS
     Route: 042
  5. VITAMIN D [Concomitant]
     Indication: PRODUCT USED FOR UNKNOWN INDICATION
  6. RESTASIS [Concomitant]
     Indication: KERATOCONJUNCTIVITIS SICCA
     Dosage: 0.05% EYE DROPS TWICE DAILY
  7. PREDNISONE [Concomitant]
     Indication: RHEUMATOID ARTHRITIS
  8. ZOLOFT [Concomitant]
     Indication: ANXIETY
  9. HUMIRA [Suspect]
     Indication: RHEUMATOID ARTHRITIS
     Dates: start: 20100709

REACTIONS (5)
  - ADMINISTRATION SITE PAIN [None]
  - PAIN [None]
  - DRUG ADMINISTRATION ERROR [None]
  - INCORRECT DOSE ADMINISTERED [None]
  - FATIGUE [None]
